FAERS Safety Report 18252461 (Version 2)
Quarter: 2020Q3

REPORT INFORMATION
  Report Type: Report from Study
  Country: US (occurrence: US)
  Receive Date: 20200910
  Receipt Date: 20200928
  Transmission Date: 20201103
  Serious: Yes (Hospitalization, Other)
  Sender: FDA-Public Use
  Company Number: US-BAYER-2020-192332

PATIENT
  Age: 59 Year
  Sex: Female
  Weight: 58.96 kg

DRUGS (3)
  1. ADEMPAS [Suspect]
     Active Substance: RIOCIGUAT
     Indication: PULMONARY ARTERIAL HYPERTENSION
     Dosage: 2.5 MG, TID
     Route: 048
  2. ADEMPAS [Suspect]
     Active Substance: RIOCIGUAT
     Indication: PULMONARY ARTERIAL HYPERTENSION
     Dosage: UNK
     Route: 048
     Dates: start: 20190716
  3. REMODULIN [Concomitant]
     Active Substance: TREPROSTINIL
     Dosage: 50 NG/KG/MIN, QD

REACTIONS (3)
  - Enteritis [Unknown]
  - Abdominal pain [Unknown]
  - Breast cancer [None]

NARRATIVE: CASE EVENT DATE: 20200905
